FAERS Safety Report 13904924 (Version 1)
Quarter: 2017Q3

REPORT INFORMATION
  Report Type: Spontaneous
  Country: CH (occurrence: CH)
  Receive Date: 20170825
  Receipt Date: 20170825
  Transmission Date: 20171127
  Serious: Yes (Death, Hospitalization, Other)
  Sender: FDA-Public Use
  Company Number: CH-009507513-1708CHE006523

PATIENT
  Sex: Male
  Weight: 65 kg

DRUGS (13)
  1. BECOZYM [Concomitant]
     Active Substance: VITAMINS
     Route: 048
  2. AUGMENTIN [Concomitant]
     Active Substance: AMOXICILLIN\CLAVULANATE POTASSIUM
     Dosage: 1 DF, TID
  3. WILD VI DE 3 [Concomitant]
     Active Substance: CHOLECALCIFEROL
     Route: 048
  4. BENERVA [Concomitant]
     Active Substance: THIAMINE
     Route: 048
  5. EFFORTIL [Concomitant]
     Active Substance: ETILEFRINE HYDROCHLORIDE
     Route: 048
  6. REMERON [Suspect]
     Active Substance: MIRTAZAPINE
     Dosage: 30 MG, QD
     Route: 048
  7. ARIXTRA [Suspect]
     Active Substance: FONDAPARINUX SODIUM
     Indication: PULMONARY EMBOLISM
     Dosage: 7.5 MG, QD
     Route: 058
     Dates: start: 20170320, end: 20170322
  8. SEROQUEL [Suspect]
     Active Substance: QUETIAPINE FUMARATE
     Dosage: 100 MG, BID
  9. MST CONTINUS [Suspect]
     Active Substance: MORPHINE SULFATE
     Dosage: 30 MG, BID
     Route: 048
  10. CALCIMAGON D3 [Concomitant]
     Active Substance: CALCIUM\CHOLECALCIFEROL
  11. LYRICA [Concomitant]
     Active Substance: PREGABALIN
     Route: 048
  12. PANTOZOL [Concomitant]
     Active Substance: PANTOPRAZOLE SODIUM
  13. ELTROXIN [Concomitant]
     Active Substance: LEVOTHYROXINE

REACTIONS (4)
  - Subdural haematoma [Recovered/Resolved]
  - Cardiac arrest [Recovered/Resolved]
  - Hypoxia [Fatal]
  - Multiple organ dysfunction syndrome [Fatal]

NARRATIVE: CASE EVENT DATE: 20170322
